FAERS Safety Report 8199644-3 (Version None)
Quarter: 2012Q1

REPORT INFORMATION
  Report Type: 
  Country: None (occurrence: None)
  Receive Date: 20120311
  Receipt Date: 20120301
  Transmission Date: 20120608
  Serious: Yes (Other)
  Sender: FDA-Public Use
  Company Number: IT-ASTRAZENECA-2012SE12779

PATIENT
  Age: 20268 Day
  Sex: Female

DRUGS (10)
  1. ASPIRIN [Suspect]
     Indication: CEREBRAL ARTERY EMBOLISM
     Route: 048
     Dates: start: 20120220, end: 20120222
  2. HEPARIN SODIUM [Concomitant]
     Indication: PLATELET AGGREGATION DECREASED
  3. ISOSORBIDE DINITRATE [Concomitant]
  4. ATORVASTATIN CALCIUM [Concomitant]
  5. ACETAMINOPHEN [Concomitant]
  6. PLAVIX [Suspect]
     Indication: PROPHYLAXIS
     Route: 048
     Dates: start: 20120220, end: 20120222
  7. BRILIQUE [Suspect]
     Indication: THROMBOSIS PROPHYLAXIS
     Route: 048
     Dates: start: 20120221, end: 20120222
  8. PANTOPRAZOLE SODIUM [Concomitant]
  9. ENALAPRIL MALEATE [Concomitant]
  10. TAPAZOLE [Concomitant]

REACTIONS (3)
  - CEREBRAL HAEMORRHAGE [None]
  - HEADACHE [None]
  - VISUAL IMPAIRMENT [None]
